FAERS Safety Report 6709756-6 (Version None)
Quarter: 2010Q2

REPORT INFORMATION
  Report Type: 
  Country: None (occurrence: None)
  Receive Date: 20100504
  Receipt Date: 20100423
  Transmission Date: 20101027
  Serious: Yes (Hospitalization)
  Sender: FDA-Public Use
  Company Number: NO-JNJFOC-20100407257

PATIENT
  Sex: Female

DRUGS (3)
  1. REMICADE [Suspect]
     Indication: COLITIS ULCERATIVE
     Route: 042
  2. REMICADE [Suspect]
     Dosage: RECEIVED 2 INFUSIONS
     Route: 042
  3. REMICADE [Suspect]
     Dosage: RECEIVED 3 INFUSIONS
     Route: 042

REACTIONS (2)
  - ARTHRALGIA [None]
  - TRISMUS [None]
